FAERS Safety Report 9149042 (Version 1)
Quarter: 2013Q1

REPORT INFORMATION
  Report Type: Spontaneous
  Country: AU (occurrence: AU)
  Receive Date: 20130308
  Receipt Date: 20130308
  Transmission Date: 20140127
  Serious: Yes (Other)
  Sender: FDA-Public Use
  Company Number: AU-PFIZER INC-2013078154

PATIENT
  Sex: Male

DRUGS (1)
  1. DEPO-MEDROL [Suspect]
     Indication: TENDONITIS
     Dosage: UNK
     Dates: start: 199812

REACTIONS (4)
  - Reaction to preservatives [Unknown]
  - Angioedema [Unknown]
  - Hypotension [Unknown]
  - Rash [Unknown]
